FAERS Safety Report 7998697-2 (Version None)
Quarter: 2011Q4

REPORT INFORMATION
  Report Type: 
  Country: None (occurrence: None)
  Receive Date: 20111221
  Receipt Date: 20111216
  Transmission Date: 20120403
  Serious: Yes (Hospitalization)
  Sender: FDA-Public Use
  Company Number: GB-ABBOTT-11P-167-0884086-00

PATIENT
  Sex: Male
  Weight: 100 kg

DRUGS (2)
  1. HUMIRA [Suspect]
     Route: 058
  2. HUMIRA [Suspect]
     Indication: PSORIASIS
     Route: 058
     Dates: start: 20090601, end: 20101201

REACTIONS (9)
  - SYNCOPE [None]
  - LOWER RESPIRATORY TRACT INFECTION [None]
  - PSORIASIS [None]
  - PAIN [None]
  - BACK PAIN [None]
  - LOSS OF CONSCIOUSNESS [None]
  - NASOPHARYNGITIS [None]
  - TENDERNESS [None]
  - DIZZINESS [None]
